FAERS Safety Report 8457005-3 (Version None)
Quarter: 2012Q2

REPORT INFORMATION
  Report Type: 
  Country: None (occurrence: None)
  Receive Date: 20120614
  Receipt Date: 20120602
  Transmission Date: 20120825
  Serious: Yes (Other)
  Sender: FDA-Public Use
  Company Number: 2012S1000647

PATIENT
  Age: 53 Year
  Sex: Female

DRUGS (1)
  1. LIVAZO (PITAVASTATIN) [Suspect]
     Indication: DYSLIPIDAEMIA
     Dosage: 2 MG;1X;PO
     Route: 048
     Dates: start: 20120510, end: 20120510

REACTIONS (9)
  - DYSPNOEA [None]
  - HYPERSENSITIVITY [None]
  - DIZZINESS [None]
  - INSOMNIA [None]
  - MALAISE [None]
  - LIP OEDEMA [None]
  - SWOLLEN TONGUE [None]
  - DECREASED APPETITE [None]
  - DYSPHAGIA [None]
